FAERS Safety Report 9288662 (Version 1)
Quarter: 2012Q4

REPORT INFORMATION
  Report Type: Spontaneous
  Country: IL (occurrence: None)
  Receive Date: 20120921
  Receipt Date: 20120921
  Transmission Date: 20130627
  Serious: Yes (Other)
  Sender: FDA-Public Use
  Company Number: 2011HGS-002775

PATIENT
  Age: 29 Year
  Sex: Female
  Weight: 60 kg

DRUGS (4)
  1. BELIMUMAB [Suspect]
     Indication: SLE
     Dates: start: 20080221
  2. BELIMUMAB [Suspect]
     Indication: SLE
     Dates: start: 20090820, end: 20110922
  3. ASPIRIN (ACETYLSALICYLIC ACID) [Concomitant]
  4. PLAQUENIL (HYDROXYCHLOROQUINE SULFATE (HYDROXYCHLOROQUINE SULFATE) [Concomitant]

REACTIONS (6)
  - Pregnancy with contraceptive device [None]
  - Maternal exposure during pregnancy [None]
  - Cytomegalovirus infection [None]
  - Amniotic cavity infection [None]
  - Abortion induced [None]
  - Rash [None]
